FAERS Safety Report 5885441-8 (Version None)
Quarter: 2008Q3

REPORT INFORMATION
  Report Type: 
  Country: None (occurrence: None)
  Receive Date: 20080915
  Receipt Date: 20080915
  Transmission Date: 20090109
  Serious: Yes (Life-Threatening, Other)
  Sender: FDA-Public Use
  Company Number: None

PATIENT
  Age: 60 Year
  Sex: Male
  Weight: 126.1 kg

DRUGS (3)
  1. CEPHALEXIN [Suspect]
     Indication: FOOT OPERATION
     Dosage: 500MG 3X PER DAY PO
     Route: 048
     Dates: start: 20080423, end: 20080430
  2. CEPHALEXIN [Suspect]
     Indication: POST PROCEDURAL INFECTION
     Dosage: 500MG 3X PER DAY PO
     Route: 048
     Dates: start: 20080423, end: 20080430
  3. CEPHALEXIN [Suspect]
     Indication: STAPHYLOCOCCAL INFECTION
     Dosage: 500MG 3X PER DAY PO
     Route: 048
     Dates: start: 20080423, end: 20080430

REACTIONS (38)
  - ABDOMINAL PAIN [None]
  - ABDOMINAL PAIN UPPER [None]
  - AMNESIA [None]
  - ANOREXIA [None]
  - ASTHENIA [None]
  - CHILLS [None]
  - CHROMATURIA [None]
  - CONFUSIONAL STATE [None]
  - DIARRHOEA [None]
  - DISCOMFORT [None]
  - DISTURBANCE IN ATTENTION [None]
  - DYSPNOEA [None]
  - EMOTIONAL DISORDER [None]
  - FAECAL INCONTINENCE [None]
  - FATIGUE [None]
  - FEAR [None]
  - FLATULENCE [None]
  - GENERAL PHYSICAL HEALTH DETERIORATION [None]
  - HALLUCINATION [None]
  - HEADACHE [None]
  - HYPOPHAGIA [None]
  - IMPAIRED DRIVING ABILITY [None]
  - IMPAIRED WORK ABILITY [None]
  - IRRITABILITY [None]
  - LYMPHADENOPATHY [None]
  - MENTAL DISORDER [None]
  - NAUSEA [None]
  - PAIN [None]
  - PARANOIA [None]
  - PHOTOPHOBIA [None]
  - POLYDIPSIA [None]
  - PRURITUS [None]
  - RETCHING [None]
  - SKIN IRRITATION [None]
  - URINARY INCONTINENCE [None]
  - VOMITING [None]
  - WEIGHT DECREASED [None]
  - WHEELCHAIR USER [None]
